FAERS Safety Report 12512027 (Version 2)
Quarter: 2016Q3

REPORT INFORMATION
  Report Type: Spontaneous
  Country: US (occurrence: US)
  Receive Date: 20160630
  Receipt Date: 20160912
  Transmission Date: 20161109
  Serious: Yes (Hospitalization)
  Sender: FDA-Public Use
  Company Number: US-JNJFOC-20160508065

PATIENT
  Age: 58 Year
  Sex: Male

DRUGS (5)
  1. SYNTHROID [Concomitant]
     Active Substance: LEVOTHYROXINE SODIUM
     Indication: HYPOTHYROIDISM
     Route: 065
     Dates: start: 2008
  2. NEXIUM [Concomitant]
     Active Substance: ESOMEPRAZOLE MAGNESIUM
     Indication: PRODUCT USED FOR UNKNOWN INDICATION
     Route: 065
     Dates: start: 2007
  3. XARELTO [Suspect]
     Active Substance: RIVAROXABAN
     Indication: DEEP VEIN THROMBOSIS
     Dosage: 15 MG 1 TABLET TWICE DAILY FOR 21 DAYS AND 20 MG ONCE A DAY.
     Route: 048
     Dates: start: 20140619, end: 20141230
  4. XARELTO [Suspect]
     Active Substance: RIVAROXABAN
     Indication: VENA CAVA THROMBOSIS
     Dosage: 15 MG 1 TABLET TWICE DAILY FOR 21 DAYS AND 20 MG ONCE A DAY.
     Route: 048
     Dates: start: 20140619, end: 20141230
  5. ASPIRIN. [Suspect]
     Active Substance: ASPIRIN
     Indication: OEDEMA
     Route: 065
     Dates: end: 20141230

REACTIONS (2)
  - Gastrointestinal haemorrhage [Recovering/Resolving]
  - Coagulopathy [Unknown]

NARRATIVE: CASE EVENT DATE: 201412
